FAERS Safety Report 5663721-9 (Version None)
Quarter: 2008Q1

REPORT INFORMATION
  Report Type: 
  Country: None (occurrence: None)
  Receive Date: 20080307
  Receipt Date: 20080224
  Transmission Date: 20080703
  Serious: Yes (Other)
  Sender: FDA-Public Use
  Company Number: 2008005050

PATIENT
  Sex: Male

DRUGS (2)
  1. ZYRTEC [Suspect]
  2. CHANTIX [Suspect]

REACTIONS (1)
  - BLOOD PRESSURE INCREASED [None]
